FAERS Safety Report 6248499-2 (Version None)
Quarter: 2009Q2

REPORT INFORMATION
  Report Type: 
  Country: None (occurrence: None)
  Receive Date: 20090624
  Receipt Date: 20090624
  Transmission Date: 20091009
  Serious: Yes (Disabling)
  Sender: FDA-Public Use
  Company Number: None

PATIENT
  Sex: Female
  Weight: 70.3075 kg

DRUGS (1)
  1. CIPROFLOXACIN HCL [Suspect]
     Indication: KIDNEY INFECTION
     Dosage: 1 TABLET 2 X PER DY MOUTH
     Route: 048
     Dates: start: 20090527, end: 20090530

REACTIONS (2)
  - OEDEMA PERIPHERAL [None]
  - PAIN IN EXTREMITY [None]
